FAERS Safety Report 10671207 (Version 1)
Quarter: 2014Q4

REPORT INFORMATION
  Report Type: Spontaneous
  Country: US (occurrence: None)
  Receive Date: 20141222
  Receipt Date: 20141222
  Transmission Date: 20150529
  Serious: Yes (Other)
  Sender: FDA-Public Use
  Company Number: None

PATIENT
  Age: 59 Year
  Sex: Female
  Weight: 113.85 kg

DRUGS (1)
  1. LATUDA [Suspect]
     Active Substance: LURASIDONE HYDROCHLORIDE
     Indication: DEPRESSION
     Dosage: 1 PILL ONCE DAILY
     Dates: start: 20140713, end: 20140717

REACTIONS (5)
  - Muscular weakness [None]
  - Sleep disorder due to general medical condition, insomnia type [None]
  - Pain in extremity [None]
  - Hypoaesthesia [None]
  - Refusal of treatment by patient [None]

NARRATIVE: CASE EVENT DATE: 20140713
